FAERS Safety Report 12602141 (Version 1)
Quarter: 2016Q3

REPORT INFORMATION
  Report Type: Spontaneous
  Country: US (occurrence: US)
  Receive Date: 20160728
  Receipt Date: 20160728
  Transmission Date: 20161109
  Serious: Yes (Other)
  Sender: FDA-Public Use
  Company Number: US-ELI_LILLY_AND_COMPANY-US201607008078

PATIENT
  Sex: Female

DRUGS (1)
  1. TRULICITY [Suspect]
     Active Substance: DULAGLUTIDE
     Indication: DIABETES MELLITUS
     Dosage: 1.5 MG, WEEKLY (1/W)
     Route: 065

REACTIONS (5)
  - Pancreatitis [Unknown]
  - Lipase increased [Unknown]
  - Abdominal pain [Unknown]
  - Appetite disorder [Unknown]
  - Amylase increased [Unknown]

NARRATIVE: CASE EVENT DATE: 201607
